FAERS Safety Report 8231620-4 (Version None)
Quarter: 2012Q1

REPORT INFORMATION
  Report Type: 
  Country: None (occurrence: None)
  Receive Date: 20120323
  Receipt Date: 20120313
  Transmission Date: 20120608
  Serious: Yes (Hospitalization, Other)
  Sender: FDA-Public Use
  Company Number: US-ELI_LILLY_AND_COMPANY-US201203003813

PATIENT
  Sex: Female

DRUGS (10)
  1. VICODIN [Concomitant]
  2. OMEPRAZOLE [Concomitant]
  3. SULFASALAZINE [Concomitant]
  4. SIMVASTATIN [Concomitant]
  5. CALCIUM CARBONATE [Concomitant]
  6. FORTEO [Suspect]
     Dosage: 20 UG, QD
  7. FORTEO [Suspect]
     Indication: OSTEOPOROSIS
     Dosage: 20 UG, QD
  8. HYZAAR [Concomitant]
  9. TOPROL-XL [Concomitant]
  10. IRON [Concomitant]

REACTIONS (1)
  - HIP FRACTURE [None]
